FAERS Safety Report 12412248 (Version 1)
Quarter: 2016Q2

REPORT INFORMATION
  Report Type: Spontaneous
  Country: US (occurrence: US)
  Receive Date: 20160527
  Receipt Date: 20160527
  Transmission Date: 20160815
  Serious: No
  Sender: FDA-Public Use
  Company Number: US-MALLINCKRODT-T201600237

PATIENT
  Sex: Female

DRUGS (1)
  1. TOFRANIL [Suspect]
     Active Substance: IMIPRAMINE HYDROCHLORIDE
     Indication: PANIC DISORDER
     Dosage: 100MG
     Route: 065

REACTIONS (1)
  - Off label use [Not Recovered/Not Resolved]
